FAERS Safety Report 9467052 (Version 4)
Quarter: 2013Q4

REPORT INFORMATION
  Report Type: Spontaneous
  Country: JP (occurrence: JP)
  Receive Date: 20130820
  Receipt Date: 20131011
  Transmission Date: 20140711
  Serious: Yes (Hospitalization)
  Sender: FDA-Public Use
  Company Number: JP-GLAXOSMITHKLINE-B0916088A

PATIENT
  Age: 85 Year
  Sex: Female
  Weight: 32 kg

DRUGS (7)
  1. VALTREX [Suspect]
     Indication: HERPES ZOSTER
     Dosage: 1000MG THREE TIMES PER DAY
     Route: 048
     Dates: start: 20130812, end: 20130814
  2. UNISIA [Concomitant]
     Indication: HYPERTENSION
     Dosage: 1IUAX PER DAY
     Route: 048
  3. EPADEL S [Concomitant]
     Dosage: 1IUAX PER DAY
     Route: 048
  4. LOXONIN [Concomitant]
     Route: 048
  5. MUCOSTA [Concomitant]
     Route: 065
  6. ARASENA-A [Concomitant]
     Route: 061
  7. VITANEURIN [Concomitant]
     Route: 048

REACTIONS (9)
  - Renal failure acute [Recovering/Resolving]
  - Feeling abnormal [Unknown]
  - Malaise [Unknown]
  - Dizziness [Unknown]
  - Anxiety [Unknown]
  - Pain [Unknown]
  - Aphagia [Unknown]
  - Renal disorder [Unknown]
  - Dehydration [Unknown]
